FAERS Safety Report 20128546 (Version 1)
Quarter: 2021Q4

REPORT INFORMATION
  Report Type: Spontaneous
  Country: US (occurrence: US)
  Receive Date: 20211130
  Receipt Date: 20211130
  Transmission Date: 20220303
  Serious: Yes (Death, Other)
  Sender: FDA-Public Use
  Company Number: US-SA-SAC20211129000080

PATIENT
  Age: 58 Year
  Sex: Male

DRUGS (1)
  1. ZANTAC [Suspect]
     Active Substance: RANITIDINE HYDROCHLORIDE
     Indication: Dyspepsia
     Dosage: 300 MG, QD
     Dates: start: 200806, end: 201306

REACTIONS (1)
  - Bladder cancer stage III [Fatal]

NARRATIVE: CASE EVENT DATE: 20110601
